FAERS Safety Report 13084406 (Version 2)
Quarter: 2017Q1

REPORT INFORMATION
  Report Type: Spontaneous
  Country: GB (occurrence: GB)
  Receive Date: 20170104
  Receipt Date: 20170116
  Transmission Date: 20170428
  Serious: Yes (Other)
  Sender: FDA-Public Use
  Company Number: GB-ACTELION-A-CH2016-147412

PATIENT
  Age: 34 Year
  Sex: Female
  Weight: 62 kg

DRUGS (5)
  1. COLECALCIFEROL [Concomitant]
     Active Substance: CHOLECALCIFEROL
     Indication: VITAMIN D DEFICIENCY
     Dosage: 1000 IU, UNK
     Route: 048
  2. MIRTAZAPIN [Concomitant]
     Active Substance: MIRTAZAPINE
     Indication: DEPRESSION
     Dosage: 30 MG, QD
     Route: 048
  3. ZAVESCA [Suspect]
     Active Substance: MIGLUSTAT
     Indication: NIEMANN-PICK DISEASE
     Dosage: 200 MG, TID
     Route: 048
     Dates: start: 20120219
  4. QUETIAPINE. [Concomitant]
     Active Substance: QUETIAPINE
     Dosage: 400 MG, QD
     Route: 048
  5. AMITRIPTYLINE [Concomitant]
     Active Substance: AMITRIPTYLINE
     Dosage: 75 MG, QD
     Route: 048

REACTIONS (1)
  - Hypoacusis [Not Recovered/Not Resolved]
